FAERS Safety Report 9103372 (Version 2)
Quarter: 2013Q2

REPORT INFORMATION
  Report Type: Spontaneous
  Country: US (occurrence: US)
  Receive Date: 20130219
  Receipt Date: 20130404
  Transmission Date: 20140414
  Serious: Yes (Other)
  Sender: FDA-Public Use
  Company Number: US-PFIZER INC-2013012938

PATIENT
  Age: 79 Year
  Sex: Female
  Weight: 56.69 kg

DRUGS (6)
  1. VFEND [Suspect]
     Indication: ASPERGILLUS INFECTION
     Dosage: 200 MG, 2X/DAY
     Route: 048
  2. VFEND [Suspect]
     Indication: PULMONARY MYCOSIS
     Dosage: 200 MG, 2X/DAY
     Route: 048
  3. PRADAXA [Concomitant]
     Dosage: 150 MG, 2X/DAY
  4. FLECAINIDE [Concomitant]
     Dosage: 100 MG, 2X/DAY
  5. FOLIC ACID [Concomitant]
     Dosage: 1 MG, 1X/DAY
  6. LEVOTHYROXINE [Concomitant]
     Indication: THYROID DISORDER
     Dosage: 75 UG, 1X/DAY

REACTIONS (9)
  - Fall [Unknown]
  - Upper limb fracture [Unknown]
  - Rash [Unknown]
  - Rash [Unknown]
  - Erythema [Unknown]
  - Pruritus [Unknown]
  - Dry skin [Unknown]
  - Skin exfoliation [Unknown]
  - Pain [Unknown]
